FAERS Safety Report 10534036 (Version 2)
Quarter: 2015Q1

REPORT INFORMATION
  Report Type: Spontaneous
  Country: US (occurrence: US)
  Receive Date: 20141022
  Receipt Date: 20150112
  Transmission Date: 20150720
  Serious: No
  Sender: FDA-Public Use
  Company Number: US-009507513-1410USA010465

PATIENT
  Sex: Female
  Weight: 77.98 kg

DRUGS (5)
  1. CHONDROITIN SULFATE (BOVINE)\GLUCOSAMINE SULFATE [Concomitant]
     Active Substance: CHONDROITIN SULFATE (BOVINE)\GLUCOSAMINE SULFATE
     Indication: ARTHRALGIA
     Dosage: UNK, UNKNOWN
  2. SYNTHROID [Concomitant]
     Active Substance: LEVOTHYROXINE SODIUM
     Indication: BLOOD THYROID STIMULATING HORMONE INCREASED
     Dosage: UNK, UNKNOWN
  3. PAXIL [Concomitant]
     Active Substance: PAROXETINE HYDROCHLORIDE
     Indication: DEPRESSION
     Dosage: UNK, UNKNOWN
  4. ESTROGEN NOS [Concomitant]
     Active Substance: ESTROGENS
     Indication: EXOSTOSIS
     Dosage: UNK, UNKNOWN
  5. OXYTROL FOR WOMEN [Suspect]
     Active Substance: OXYBUTYNIN
     Indication: INCONTINENCE
     Dosage: 1 DF, BIW
     Route: 062
     Dates: start: 20140906, end: 20141013

REACTIONS (6)
  - Application site erythema [Recovered/Resolved]
  - Drug administered at inappropriate site [Unknown]
  - Inappropriate schedule of drug administration [Unknown]
  - Application site rash [Recovered/Resolved]
  - Incorrect drug administration duration [Unknown]
  - Application site pruritus [Recovered/Resolved]

NARRATIVE: CASE EVENT DATE: 2014
